FAERS Safety Report 8572245-0 (Version None)
Quarter: 2012Q3

REPORT INFORMATION
  Report Type: 
  Country: None (occurrence: None)
  Receive Date: 20120806
  Receipt Date: 20120731
  Transmission Date: 20120928
  Serious: Yes (Life-Threatening, Other)
  Sender: FDA-Public Use
  Company Number: JP-ASTELLAS-2012US006678

PATIENT
  Sex: Female

DRUGS (13)
  1. DECADRON [Suspect]
     Indication: ADENOCARCINOMA PANCREAS
     Dosage: 4 MG, UID/QD
     Route: 048
     Dates: start: 20120531, end: 20120602
  2. DECADRON [Suspect]
     Dosage: 8 MG, UID/QD
     Route: 048
     Dates: start: 20120620
  3. ERLOTINIB HYDROCHLORIDE [Suspect]
     Indication: ADENOCARCINOMA PANCREAS
     Dosage: 100 MG, UID/QD
     Route: 048
     Dates: start: 20120523, end: 20120603
  4. GEMCITABINE HYDROCHLORIDE [Concomitant]
     Indication: ADENOCARCINOMA PANCREAS
     Dosage: 1000 MG/M2, WEEKLY
     Route: 041
     Dates: start: 20120523, end: 20120530
  5. URSO                               /00465701/ [Concomitant]
     Indication: PRODUCT USED FOR UNKNOWN INDICATION
     Dosage: 300 MG, UID/QD
     Route: 048
     Dates: end: 20120606
  6. PANCRELIPASE [Concomitant]
     Indication: PRODUCT USED FOR UNKNOWN INDICATION
     Dosage: 450 MG, UID/QD
     Route: 048
     Dates: start: 20120607
  7. MAGNESIUM OXIDE [Concomitant]
     Indication: PRODUCT USED FOR UNKNOWN INDICATION
     Dosage: 990 MG, UID/QD
     Route: 048
     Dates: end: 20120607
  8. BARACLUDE [Concomitant]
     Indication: VIRAL HEPATITIS CARRIER
     Dosage: 0.5 MG, UID/QD
     Route: 048
     Dates: start: 20120523
  9. PROTECADIN [Concomitant]
     Indication: PRODUCT USED FOR UNKNOWN INDICATION
     Dosage: 20 MG, UID/QD
     Route: 048
     Dates: start: 20120606
  10. TRAMADOL HYDROCHLORIDE [Suspect]
     Dosage: 125 MG, UID/QD
     Route: 048
     Dates: start: 20120623, end: 20120625
  11. DECADRON [Suspect]
     Dosage: 8 MG, UID/QD
     Route: 048
     Dates: start: 20120604, end: 20120608
  12. LOXONIN [Suspect]
     Indication: ADENOCARCINOMA PANCREAS
     Dosage: 180 MG, UID/QD
     Route: 048
     Dates: end: 20120606
  13. TRAMADOL HYDROCHLORIDE [Suspect]
     Indication: ADENOCARCINOMA PANCREAS
     Dosage: 75 MG, UID/QD
     Route: 048
     Dates: start: 20120523, end: 20120608

REACTIONS (6)
  - GASTROINTESTINAL HAEMORRHAGE [None]
  - SKIN DISORDER [None]
  - PLEURAL EFFUSION [None]
  - PNEUMONIA [None]
  - LIVER DISORDER [None]
  - NAUSEA [None]
